FAERS Safety Report 26184693 (Version 1)
Quarter: 2025Q4

REPORT INFORMATION
  Report Type: Report from Study
  Country: US (occurrence: US)
  Receive Date: 20251222
  Receipt Date: 20251222
  Transmission Date: 20260117
  Serious: Yes (Other)
  Sender: JOHNSON AND JOHNSON
  Company Number: US-JNJFOC-20251224111

PATIENT
  Age: 77 Year
  Sex: Female

DRUGS (9)
  1. SPRAVATO [Suspect]
     Active Substance: ESKETAMINE
     Indication: Depression
     Dosage: ^56 MG, 1 TOTAL DOSE^
     Route: 045
     Dates: start: 20250522, end: 20250522
  2. SPRAVATO [Suspect]
     Active Substance: ESKETAMINE
     Dosage: ^84 MG, 1 TOTAL DOSE^
     Route: 045
     Dates: start: 20250527, end: 20250527
  3. SPRAVATO [Suspect]
     Active Substance: ESKETAMINE
     Dosage: ^56 MG, 2 TOTAL DOSES^
     Route: 045
     Dates: start: 20250603, end: 20250605
  4. SPRAVATO [Suspect]
     Active Substance: ESKETAMINE
     Dosage: ^84 MG, 1 TOTAL DOSE^
     Route: 045
     Dates: start: 20250610, end: 20250610
  5. SPRAVATO [Suspect]
     Active Substance: ESKETAMINE
     Dosage: ^56 MG, 21 TOTAL DOSES^
     Route: 045
     Dates: start: 20250612, end: 20251202
  6. SPRAVATO [Suspect]
     Active Substance: ESKETAMINE
     Dosage: ^56 MG, 1 TOTAL DOSE^, RECENT DOSE
     Route: 045
     Dates: start: 20251216, end: 20251216
  7. SPRAVATO [Suspect]
     Active Substance: ESKETAMINE
     Dosage: ^28 MG, 1 TOTAL DOSE^
     Route: 045
     Dates: start: 20250520, end: 20250520
  8. ADDERALL [Concomitant]
     Active Substance: AMPHETAMINE ASPARTATE\AMPHETAMINE SULFATE\DEXTROAMPHETAMINE SACCHARATE\DEXTROAMPHETAMINE SULFATE
     Indication: Product used for unknown indication
  9. TRAMADOL [Concomitant]
     Active Substance: TRAMADOL
     Indication: Product used for unknown indication

REACTIONS (3)
  - Sedation [Unknown]
  - Dissociation [Unknown]
  - Physical examination abnormal [Unknown]

NARRATIVE: CASE EVENT DATE: 20251216
